FAERS Safety Report 9391066 (Version 2)
Quarter: 2013Q4

REPORT INFORMATION
  Report Type: Spontaneous
  Country: US (occurrence: US)
  Receive Date: 20130709
  Receipt Date: 20131023
  Transmission Date: 20140711
  Serious: Yes (Death, Hospitalization, Other)
  Sender: FDA-Public Use
  Company Number: US-PFIZER INC-2013200026

PATIENT
  Age: 62 Year
  Sex: Female

DRUGS (5)
  1. XALKORI [Suspect]
     Indication: LUNG NEOPLASM MALIGNANT
     Dosage: 200 MG, TWO TIMES A DAY
     Route: 048
     Dates: start: 20130529
  2. XALKORI [Suspect]
     Dosage: UNK
     Route: 048
     Dates: start: 20130531
  3. XALKORI [Suspect]
     Dosage: UNK
     Route: 048
     Dates: start: 201306
  4. ZOFRAN [Concomitant]
     Dosage: 8 MG, 2 TIMES A DAY, PRN
     Route: 048
  5. METOPROLOL [Concomitant]
     Dosage: 50 MG, BID

REACTIONS (13)
  - Death [Fatal]
  - Upper respiratory tract infection [Unknown]
  - Dyspnoea [Unknown]
  - Productive cough [Unknown]
  - Pleural effusion [Unknown]
  - Pericardial effusion [Unknown]
  - Atrial fibrillation [Unknown]
  - Constipation [Unknown]
  - Nausea [Unknown]
  - Vomiting [Unknown]
  - Weight increased [Unknown]
  - Asthenia [Unknown]
  - Chest pain [Unknown]
